FAERS Safety Report 5721909-2 (Version None)
Quarter: 2008Q2

REPORT INFORMATION
  Report Type: 
  Country: None (occurrence: None)
  Receive Date: 20080429
  Receipt Date: 20080423
  Transmission Date: 20081010
  Serious: Yes (Death)
  Sender: FDA-Public Use
  Company Number: US-PURDUE-USA_2008_0032559

PATIENT
  Age: 77 Year
  Sex: Male

DRUGS (1)
  1. DILAUDID [Suspect]
     Indication: PAIN

REACTIONS (1)
  - DEATH [None]
